FAERS Safety Report 24214139 (Version 1)
Quarter: 2024Q3

REPORT INFORMATION
  Report Type: Spontaneous
  Country: GB (occurrence: None)
  Receive Date: 20240815
  Receipt Date: 20240815
  Transmission Date: 20241016
  Serious: Yes (Other)
  Sender: ASTRAZENECA
  Company Number: 2024A181039

PATIENT
  Age: 39 Year
  Sex: Female

DRUGS (8)
  1. QUETIAPINE [Suspect]
     Active Substance: QUETIAPINE
     Indication: Anxiety
     Dosage: 50.0MG UNKNOWN
     Dates: start: 20240729
  2. QUETIAPINE [Suspect]
     Active Substance: QUETIAPINE
     Indication: Post-traumatic stress disorder
     Dosage: 50.0MG UNKNOWN
     Dates: start: 20240729
  3. PREGABALIN [Suspect]
     Active Substance: PREGABALIN
     Indication: Hot flush
     Dates: start: 20240701
  4. PREGABALIN [Suspect]
     Active Substance: PREGABALIN
     Indication: Anxiety
     Dates: start: 20240701
  5. PREGABALIN [Suspect]
     Active Substance: PREGABALIN
     Indication: Post-traumatic stress disorder
     Dates: start: 20240701
  6. PREGABALIN [Suspect]
     Active Substance: PREGABALIN
     Indication: Hot flush
     Dates: start: 20240729
  7. PREGABALIN [Suspect]
     Active Substance: PREGABALIN
     Indication: Anxiety
     Dates: start: 20240729
  8. PREGABALIN [Suspect]
     Active Substance: PREGABALIN
     Indication: Post-traumatic stress disorder
     Dates: start: 20240729

REACTIONS (3)
  - Hot flush [Not Recovered/Not Resolved]
  - Hyperhidrosis [Unknown]
  - Discomfort [Unknown]

NARRATIVE: CASE EVENT DATE: 20240731
